FAERS Safety Report 6437438-7 (Version None)
Quarter: 2009Q4

REPORT INFORMATION
  Report Type: 
  Country: None (occurrence: None)
  Receive Date: 20091112
  Receipt Date: 20091103
  Transmission Date: 20100525
  Serious: Yes (Other)
  Sender: FDA-Public Use
  Company Number: ES-ASTRAZENECA-2009SE24134

PATIENT
  Age: 80 Year
  Sex: Male

DRUGS (2)
  1. ATACAND [Interacting]
     Indication: MYOCARDIAL ISCHAEMIA
     Route: 048
     Dates: start: 20090112, end: 20090119
  2. TENORMIN [Suspect]
     Indication: MYOCARDIAL ISCHAEMIA
     Route: 048
     Dates: start: 20090112, end: 20090119

REACTIONS (3)
  - BRADYCARDIA [None]
  - HYPOTENSION [None]
  - PRESYNCOPE [None]
